FAERS Safety Report 8871952 (Version 1)
Quarter: 2012Q4

REPORT INFORMATION
  Report Type: 
  Country: US (occurrence: US)
  Receive Date: 20121023
  Receipt Date: 20121023
  Transmission Date: 20130627
  Serious: Yes (Other)
  Sender: FDA-Public Use
  Company Number: US-ASTELLAS-2012US005885

PATIENT
  Age: 64 Year
  Sex: Male
  Weight: 110 kg

DRUGS (6)
  1. PROGRAF [Suspect]
     Indication: RENAL TRANSPLANT
     Dosage: 1 mg, UID/QD
     Route: 048
     Dates: start: 20051020
  2. PROGRAF [Suspect]
     Indication: PANCREAS TRANSPLANT
     Dosage: 0.5 mg, UID/QD
     Route: 048
     Dates: start: 20051020
  3. LIPITOR [Concomitant]
     Indication: BLOOD CHOLESTEROL
     Dosage: UNK
     Route: 065
  4. NOVOLOG MIX [Concomitant]
     Indication: DIABETES MELLITUS
     Dosage: UNK
     Route: 065
  5. LANTUS [Concomitant]
     Indication: DIABETES MELLITUS
     Dosage: UNK
     Route: 065
  6. AVAPRO [Concomitant]
     Indication: BLOOD PRESSURE
     Dosage: UNK
     Route: 065

REACTIONS (6)
  - Off label use [Unknown]
  - Transplant rejection [Unknown]
  - Treatment noncompliance [Unknown]
  - Hypokinesia [Unknown]
  - Malaise [Not Recovered/Not Resolved]
  - Pain [Unknown]
